FAERS Safety Report 16470620 (Version 1)
Quarter: 2019Q2

REPORT INFORMATION
  Report Type: Spontaneous
  Country: US (occurrence: US)
  Receive Date: 20190514
  Receipt Date: 20190514
  Transmission Date: 20190711
  Serious: No
  Sender: FDA-Public Use
  Company Number: None

PATIENT
  Age: 54 Year
  Sex: Female

DRUGS (1)
  1. SIMPONI [Suspect]
     Active Substance: GOLIMUMAB
     Dates: start: 20181113, end: 20190329

REACTIONS (2)
  - Therapy non-responder [None]
  - Therapeutic response shortened [None]

NARRATIVE: CASE EVENT DATE: 20190329
